FAERS Safety Report 9158405 (Version 1)
Quarter: 2013Q1

REPORT INFORMATION
  Report Type: Spontaneous
  Country: US (occurrence: US)
  Receive Date: 20130312
  Receipt Date: 20130312
  Transmission Date: 20140127
  Serious: No
  Sender: FDA-Public Use
  Company Number: US-BAUSCH-2012BL002413

PATIENT
  Age: 28 Year
  Sex: Male

DRUGS (1)
  1. DESMOPRESSIN ACETATE [Suspect]
     Indication: DIABETES INSIPIDUS
     Dosage: DAILY DOSE: 1 SPRAY
     Route: 045
     Dates: start: 20120401, end: 20120402

REACTIONS (1)
  - Drug ineffective [Recovered/Resolved]
